FAERS Safety Report 5913637-5 (Version None)
Quarter: 2008Q4

REPORT INFORMATION
  Report Type: 
  Country: None (occurrence: None)
  Receive Date: 20081009
  Receipt Date: 20080930
  Transmission Date: 20090506
  Serious: Yes (Other)
  Sender: FDA-Public Use
  Company Number: US-ROCHE-587128

PATIENT
  Sex: Female
  Weight: 93.9 kg

DRUGS (7)
  1. BONIVA [Suspect]
     Indication: OSTEOPOROSIS
     Dosage: STRENGTH: 3MG/3 ML
     Route: 042
     Dates: start: 20080818
  2. AMARYL [Concomitant]
  3. TOPROL-XL [Concomitant]
     Indication: HYPERTENSION
  4. NEXIUM [Concomitant]
     Indication: BARRETT'S OESOPHAGUS
  5. CYMBALTA [Concomitant]
     Indication: BARRETT'S OESOPHAGUS
  6. CELEBREX [Concomitant]
     Indication: BARRETT'S OESOPHAGUS
  7. LOTRONEX [Concomitant]
     Indication: IRRITABLE BOWEL SYNDROME

REACTIONS (1)
  - CELLULITIS [None]
